FAERS Safety Report 12416299 (Version 3)
Quarter: 2021Q1

REPORT INFORMATION
  Report Type: Report from Study
  Country: CH (occurrence: CH)
  Receive Date: 20160530
  Receipt Date: 20210224
  Transmission Date: 20210419
  Serious: Yes (Congenital Anomaly, Other)
  Sender: FDA-Public Use
  Company Number: CH-PFIZER INC-2016277001

PATIENT

DRUGS (10)
  1. ALCOHOL. [Concomitant]
     Active Substance: ALCOHOL
     Dosage: UNK
     Route: 064
  2. PREGABALIN. [Suspect]
     Active Substance: PREGABALIN
     Indication: NEURALGIA
     Dosage: 300 MG, DAILY
     Route: 064
  3. NALTREXONE [Concomitant]
     Active Substance: NALTREXONE
     Dosage: UNK
     Route: 064
  4. IRBESARTAN. [Concomitant]
     Active Substance: IRBESARTAN
     Dosage: UNK
     Route: 064
  5. ATORVASTATIN [Concomitant]
     Active Substance: ATORVASTATIN
     Dosage: UNK
     Route: 064
  6. PREGABALIN. [Suspect]
     Active Substance: PREGABALIN
     Indication: MENTAL DISORDER
  7. HYDROCHLOROTHIAZIDE. [Concomitant]
     Active Substance: HYDROCHLOROTHIAZIDE
     Dosage: UNK
     Route: 064
  8. ACAMPROSATE [Concomitant]
     Active Substance: ACAMPROSATE
     Dosage: UNK
     Route: 064
  9. NICARDIPINE [Concomitant]
     Active Substance: NICARDIPINE
     Dosage: UNK
     Route: 064
  10. TOBACCO [Concomitant]
     Active Substance: TOBACCO LEAF
     Dosage: UNK
     Route: 064

REACTIONS (9)
  - Maternal exposure during pregnancy [Unknown]
  - Congenital anomaly [Unknown]
  - Cerebrovascular stenosis [Unknown]
  - Umbilical hernia [Unknown]
  - Cerebral ventricle dilatation [Unknown]
  - Rib deformity [Unknown]
  - Hydrocephalus [Unknown]
  - Atrial septal defect [Unknown]
  - Limb malformation [Unknown]
